FAERS Safety Report 23185610 (Version 2)
Quarter: 2024Q1

REPORT INFORMATION
  Report Type: Spontaneous
  Country: DE (occurrence: DE)
  Receive Date: 20231115
  Receipt Date: 20240117
  Transmission Date: 20240410
  Serious: Yes (Other)
  Sender: FDA-Public Use
  Company Number: DE-BAYER-2023A161201

PATIENT
  Sex: Female

DRUGS (1)
  1. PRIMOVIST [Suspect]
     Active Substance: GADOXETATE DISODIUM
     Dosage: UNK UNK, ONCE

REACTIONS (4)
  - Traumatic haemorrhage [None]
  - Skin laceration [None]
  - Accident at work [None]
  - Syringe issue [None]
